FAERS Safety Report 4329443-1 (Version None)
Quarter: 2004Q1

REPORT INFORMATION
  Report Type: 
  Country: None (occurrence: None)
  Receive Date: 20040325
  Receipt Date: 20040227
  Transmission Date: 20041129
  Serious: No
  Sender: FDA-Public Use
  Company Number: USA-2004-0013435

PATIENT
  Sex: Female

DRUGS (2)
  1. SPECTRACEF [Suspect]
     Dosage: MG,
  2. PREDNISONE [Concomitant]

REACTIONS (1)
  - NAUSEA [None]
